FAERS Safety Report 5871320-9 (Version None)
Quarter: 2008Q3

REPORT INFORMATION
  Report Type: 
  Country: None (occurrence: None)
  Receive Date: 20080905
  Receipt Date: 20080903
  Transmission Date: 20090109
  Serious: Yes (Death, Hospitalization)
  Sender: FDA-Public Use
  Company Number: ID-BAYER-200825502GPV

PATIENT
  Age: 20 Year
  Sex: Female
  Weight: 65 kg

DRUGS (3)
  1. BETAFERON [Suspect]
     Indication: MULTIPLE SCLEROSIS
     Route: 058
     Dates: start: 20080713, end: 20080813
  2. DEXAMETHASONE TAB [Concomitant]
     Indication: MULTIPLE SCLEROSIS
     Dosage: UNIT DOSE: 1 MG
     Route: 048
  3. MEFENAMIC ACID [Concomitant]
     Indication: GASTRITIS
     Dosage: UNIT DOSE: 500 MG

REACTIONS (2)
  - DEATH [None]
  - DYSPNOEA [None]
